FAERS Safety Report 7240350-7 (Version None)
Quarter: 2011Q1

REPORT INFORMATION
  Report Type: 
  Country: None (occurrence: None)
  Receive Date: 20110124
  Receipt Date: 20110118
  Transmission Date: 20110831
  Serious: Yes (Congenital Anomaly)
  Sender: FDA-Public Use
  Company Number: DK-JNJFOC-JADEN37732

PATIENT
  Sex: Male

DRUGS (2)
  1. VANQUIN SUS [Suspect]
     Indication: DRUG EXPOSURE DURING PREGNANCY
     Route: 048
     Dates: start: 19960906
  2. VERMOX [Suspect]
     Indication: DRUG EXPOSURE DURING PREGNANCY
     Dosage: MEBENDAZOLE THERAPY WAS STOPPED AFTER ONE DOSE
     Route: 048
     Dates: start: 19960905

REACTIONS (2)
  - ADVERSE EVENT [None]
  - CLEFT PALATE [None]
